FAERS Safety Report 6332509-8 (Version None)
Quarter: 2009Q3

REPORT INFORMATION
  Report Type: 
  Country: None (occurrence: None)
  Receive Date: 20090828
  Receipt Date: 20090324
  Transmission Date: 20100115
  Serious: No
  Sender: FDA-Public Use
  Company Number: A0762832A

PATIENT
  Age: 33 Year
  Sex: Female

DRUGS (2)
  1. MALARONE [Suspect]
     Indication: MALARIA
     Dosage: 1TAB SINGLE DOSE
     Route: 048
     Dates: start: 20081214, end: 20081215
  2. NO CONCURRENT MEDICATION [Concomitant]

REACTIONS (5)
  - RASH MACULAR [None]
  - RASH PUSTULAR [None]
  - SKIN EXFOLIATION [None]
  - SKIN WARM [None]
  - SWELLING FACE [None]
